FAERS Safety Report 15802054 (Version 9)
Quarter: 2019Q2

REPORT INFORMATION
  Report Type: Spontaneous
  Country: JP (occurrence: JP)
  Receive Date: 20190109
  Receipt Date: 20190412
  Transmission Date: 20190711
  Serious: Yes (Death, Life-Threatening, Hospitalization, Other)
  Sender: FDA-Public Use
  Company Number: PHHY2019JP002203

PATIENT
  Age: 78 Year
  Sex: Male
  Weight: 61 kg

DRUGS (7)
  1. NEORAL [Suspect]
     Active Substance: CYCLOSPORINE
     Dosage: 60 MG, QD
     Route: 048
  2. METHYLPREDNISOLONE. [Suspect]
     Active Substance: METHYLPREDNISOLONE
     Indication: INTERSTITIAL LUNG DISEASE
     Dosage: 500 MG, QD
     Route: 065
     Dates: start: 20160414, end: 20160416
  3. NEORAL [Suspect]
     Active Substance: CYCLOSPORINE
     Dosage: 150 MG, QD
     Route: 048
     Dates: end: 20160428
  4. PREDNISOLONE. [Suspect]
     Active Substance: PREDNISOLONE
     Indication: INTERSTITIAL LUNG DISEASE
     Dosage: 30 MG, QD
     Route: 048
     Dates: start: 201403
  5. NEORAL [Suspect]
     Active Substance: CYCLOSPORINE
     Indication: INTERSTITIAL LUNG DISEASE
     Dosage: 50 MG, BID
     Route: 048
     Dates: start: 20160217
  6. PREDNISOLONE. [Suspect]
     Active Substance: PREDNISOLONE
     Dosage: 25 MG, QD
     Route: 048
  7. PREDNISOLONE. [Suspect]
     Active Substance: PREDNISOLONE
     Dosage: 20 MG, QD
     Route: 048

REACTIONS (9)
  - Cough [Fatal]
  - Disseminated intravascular coagulation [Unknown]
  - Respiratory failure [Fatal]
  - Product use in unapproved indication [Unknown]
  - Bronchopulmonary aspergillosis [Fatal]
  - Pyrexia [Fatal]
  - Pulmonary necrosis [Fatal]
  - Diabetes mellitus [Unknown]
  - Productive cough [Fatal]

NARRATIVE: CASE EVENT DATE: 20160417
